FAERS Safety Report 7777145-1 (Version None)
Quarter: 2011Q3

REPORT INFORMATION
  Report Type: 
  Country: None (occurrence: None)
  Receive Date: 20110926
  Receipt Date: 20110901
  Transmission Date: 20111222
  Serious: No
  Sender: FDA-Public Use
  Company Number: US-TYCO HEALTHCARE/MALLINCKRODT-T201101580

PATIENT
  Age: 79 Year
  Sex: Male

DRUGS (2)
  1. TECHNETIUM TC 99M SESTAMIBI [Suspect]
     Indication: SCAN PARATHYROID
     Dosage: UNK
     Dates: start: 20110805, end: 20110805
  2. ULTRA-TECHNEKOW [Concomitant]
     Dosage: UNK
     Dates: start: 20110805, end: 20110805

REACTIONS (1)
  - DRUG INEFFECTIVE [None]
